FAERS Safety Report 23574889 (Version 1)
Quarter: 2024Q1

REPORT INFORMATION
  Report Type: Other
  Country: GB (occurrence: None)
  Receive Date: 20240228
  Receipt Date: 20240228
  Transmission Date: 20240410
  Serious: No
  Sender: FDA-Public Use
  Company Number: GB-ROCHE-3407515

PATIENT
  Age: 29 Year
  Sex: Female

DRUGS (2)
  1. OCRELIZUMAB [Suspect]
     Active Substance: OCRELIZUMAB
     Indication: Relapsing-remitting multiple sclerosis
     Dosage: FIRST SPLIT INFUSION TODAY 300 MG AS PER SMPC FOR FIRST INFUSION ;ONGOING: YES
     Route: 041
     Dates: start: 20230817
  2. OCRELIZUMAB [Suspect]
     Active Substance: OCRELIZUMAB
     Route: 042
     Dates: start: 20240221

REACTIONS (5)
  - Infusion related reaction [Recovered/Resolved]
  - Viral infection [Recovered/Resolved]
  - Dry eye [Recovering/Resolving]
  - Herpes zoster [Unknown]
  - Pruritus [Unknown]

NARRATIVE: CASE EVENT DATE: 20230817
